FAERS Safety Report 8948132 (Version 1)
Quarter: 2012Q4

REPORT INFORMATION
  Report Type: Spontaneous
  Country: GB (occurrence: None)
  Receive Date: 20121126
  Receipt Date: 20121126
  Transmission Date: 20130627
  Serious: Yes (Other)
  Sender: FDA-Public Use
  Company Number: 2012AP003979

PATIENT
  Age: 46 Year
  Sex: Male

DRUGS (3)
  1. ZOPICLONE [Suspect]
     Dates: start: 201210
  2. CITALOPRAM (CITALOPRAM) [Suspect]
     Dosage: 10 NG; Unknown; QD
  3. CITALOPRAM (CITALOPRAM) [Suspect]
     Dosage: 20 MG ; Unknown ; QD

REACTIONS (2)
  - Mania [None]
  - Unevaluable event [None]
